FAERS Safety Report 20020452 (Version 2)
Quarter: 2021Q4

REPORT INFORMATION
  Report Type: Report from Study
  Country: KR (occurrence: KR)
  Receive Date: 20211101
  Receipt Date: 20211124
  Transmission Date: 20220303
  Serious: Yes (Hospitalization)
  Sender: FDA-Public Use
  Company Number: KR-MORPHOSYS US-2021-MOR001356-KR

PATIENT
  Age: 32 Year
  Sex: Male
  Weight: 98.1 kg

DRUGS (35)
  1. LENALIDOMIDE [Suspect]
     Active Substance: LENALIDOMIDE
     Indication: Diffuse large B-cell lymphoma
     Dosage: 1191 MILLIGRAM, ONCE
     Route: 042
     Dates: start: 20211025
  2. PLACEBO [Suspect]
     Active Substance: UNSPECIFIED INGREDIENT
     Indication: Diffuse large B-cell lymphoma
     Dosage: 1191 MILLIGRAM, ONCE
     Route: 042
     Dates: start: 20211025
  3. TAFASITAMAB [Suspect]
     Active Substance: TAFASITAMAB
     Indication: Diffuse large B-cell lymphoma
     Dosage: 1191 MILLIGRAM, ONCE
     Route: 042
     Dates: start: 20211025
  4. LENALIDOMIDE [Suspect]
     Active Substance: LENALIDOMIDE
     Indication: Diffuse large B-cell lymphoma
     Dosage: 25 MILLIGRAM, QD
     Route: 048
     Dates: start: 20211025
  5. CYCLOPHOSPHAMIDE\DOXORUBICIN\PREDNISONE\RITUXIMAB\VINCRISTINE [Suspect]
     Active Substance: CYCLOPHOSPHAMIDE\DOXORUBICIN\PREDNISONE\RITUXIMAB\VINCRISTINE
     Indication: Diffuse large B-cell lymphoma
     Dosage: UNK
     Dates: start: 20211025
  6. VITAMINS [Concomitant]
     Active Substance: VITAMINS
     Indication: Nutritional supplementation
     Dosage: 5 MILLILITER, ONCE
     Route: 042
     Dates: start: 20211021, end: 20211021
  7. VITAMINS [Concomitant]
     Active Substance: VITAMINS
     Dosage: 5 MILLILITER, ONCE
     Route: 042
     Dates: start: 20211023, end: 20211024
  8. VITAMINS [Concomitant]
     Active Substance: VITAMINS
     Dosage: 5 MILLILITER, ONCE
     Route: 042
     Dates: start: 20211026, end: 20211026
  9. LIDOCAINE [Concomitant]
     Active Substance: LIDOCAINE
     Indication: Central venous catheterisation
     Dosage: 20 MILLILITER, ONCE
     Route: 058
     Dates: start: 20211021, end: 20211021
  10. EGAFUSIN [Concomitant]
     Indication: Nutritional supplementation
     Dosage: 500 MILLILITER, ONCE A DAY
     Route: 042
     Dates: start: 20211021, end: 20211022
  11. EGAFUSIN [Concomitant]
     Dosage: 500 MILLILITER, ONCE A DAY
     Route: 042
     Dates: start: 20211026, end: 20211026
  12. CEFTIZOXIME SODIUM [Concomitant]
     Active Substance: CEFTIZOXIME SODIUM
     Indication: Anti-infective therapy
     Dosage: 1 GRAM, BID
     Route: 042
     Dates: start: 20211021, end: 20211023
  13. MEPERIDINE [Concomitant]
     Active Substance: MEPERIDINE
     Indication: Procedural pain
     Dosage: 25 MILLIGRAM, ONCE
     Route: 042
     Dates: start: 20021022, end: 20211022
  14. GASTER [Concomitant]
     Active Substance: FAMOTIDINE
     Indication: Dyspepsia
     Dosage: 20 MILLIGRAM, BID
     Route: 042
     Dates: start: 20211022, end: 20211023
  15. SODIUM BICARBONATE [Concomitant]
     Active Substance: SODIUM BICARBONATE
     Indication: Prophylaxis
     Dosage: 60 MILLIEQUIVALENT, BID
     Route: 042
     Dates: start: 20211024, end: 20211029
  16. SODIUM BICARBONATE [Concomitant]
     Active Substance: SODIUM BICARBONATE
     Indication: Tumour lysis syndrome
  17. POTASSIUM CHLORIDE [Concomitant]
     Active Substance: POTASSIUM CHLORIDE
     Indication: Prophylaxis
     Dosage: 20 MILLIEQUIVALENT, BID
     Route: 042
     Dates: start: 20211024, end: 20211029
  18. MORPHINE SULFATE [Concomitant]
     Active Substance: MORPHINE SULFATE
     Indication: Abdominal pain
     Dosage: 5 MILLIGRAM, PRN
     Route: 042
     Dates: start: 20211025
  19. LASIX [Concomitant]
     Active Substance: FUROSEMIDE
     Indication: Oliguria
     Dosage: 20 MILLIGRAM, ONCE
     Route: 042
     Dates: start: 20211025, end: 20211025
  20. ASPIRIN [Concomitant]
     Active Substance: ASPIRIN
     Indication: Thrombosis prophylaxis
     Dosage: 100 MILLIGRAM, QD
     Route: 048
     Dates: start: 20211025
  21. ALLOPURINOL [Concomitant]
     Active Substance: ALLOPURINOL
     Indication: Tumour lysis syndrome
     Dosage: 100 MILLIGRAM, QD
     Route: 048
     Dates: start: 20211025
  22. ALLOPURINOL [Concomitant]
     Active Substance: ALLOPURINOL
     Indication: Prophylaxis
  23. ATIVAN [Concomitant]
     Active Substance: LORAZEPAM
     Indication: Premedication
     Dosage: 1 MILLIGRAM, ONCE
     Route: 042
     Dates: start: 20211025, end: 20211025
  24. AKYNZEO [Concomitant]
     Active Substance: NETUPITANT\PALONOSETRON HYDROCHLORIDE
     Indication: Premedication
     Dosage: 1 CAP, ONCE
     Route: 048
     Dates: start: 20211025, end: 20211025
  25. CHLORPROMAZINE [Concomitant]
     Active Substance: CHLORPROMAZINE
     Indication: Hiccups
     Dosage: 25 MILLIGRAM, PRN
     Route: 048
     Dates: start: 20211026, end: 20211027
  26. CHLORPROMAZINE [Concomitant]
     Active Substance: CHLORPROMAZINE
     Dosage: 50 MILLIGRAM, PRN
     Route: 048
     Dates: start: 20211027, end: 20211027
  27. NEULASTA [Concomitant]
     Active Substance: PEGFILGRASTIM
     Indication: Prophylaxis
     Dosage: 6 MILLIGRAM ONCE
     Route: 058
     Dates: start: 20211026, end: 20211026
  28. NEULASTA [Concomitant]
     Active Substance: PEGFILGRASTIM
     Indication: Neutropenia
  29. SODIUM CHLORIDE [Concomitant]
     Active Substance: SODIUM CHLORIDE
     Indication: Prophylaxis
     Dosage: 80 MILLIEQUIVALENT, ONCE A DAY
     Route: 042
     Dates: start: 20211027, end: 20211027
  30. SODIUM CHLORIDE [Concomitant]
     Active Substance: SODIUM CHLORIDE
     Indication: Tumour lysis syndrome
  31. SODIUM CHLORIDE [Concomitant]
     Active Substance: SODIUM CHLORIDE
     Indication: Prophylaxis
     Dosage: 1000 MILLILITER, ONCE A DAY
     Route: 042
     Dates: start: 20211027, end: 20211027
  32. SODIUM CHLORIDE [Concomitant]
     Active Substance: SODIUM CHLORIDE
     Indication: Tumour lysis syndrome
  33. OXYCODONE HYDROCHLORIDE [Concomitant]
     Active Substance: OXYCODONE HYDROCHLORIDE
     Indication: Abdominal pain
     Dosage: 5 MILLIGRAM, PRN
     Route: 048
     Dates: start: 20211029
  34. HEXAMEDINE [Concomitant]
     Indication: Mucosal inflammation
     Dosage: 5 MILLILITER, PRN GARGLE
     Dates: start: 20211029
  35. ALPIT [Concomitant]
     Indication: Dyspepsia
     Dosage: 5 MILLIGRAM, ONCE
     Route: 042
     Dates: start: 20211029, end: 20211029

REACTIONS (1)
  - Tumour lysis syndrome [Recovered/Resolved]

NARRATIVE: CASE EVENT DATE: 20211027
